FAERS Safety Report 6935272-2 (Version None)
Quarter: 2010Q3

REPORT INFORMATION
  Report Type: 
  Country: None (occurrence: None)
  Receive Date: 20100822
  Receipt Date: 20100728
  Transmission Date: 20110219
  Serious: No
  Sender: FDA-Public Use
  Company Number: US-ALLERGAN-1009814US

PATIENT
  Age: 58 Year
  Sex: Female
  Weight: 82.993 kg

DRUGS (13)
  1. COMBIGAN [Suspect]
     Indication: INTRAOCULAR PRESSURE TEST
  2. XALATAN [Suspect]
     Indication: INTRAOCULAR PRESSURE TEST
  3. TRICOR [Concomitant]
     Indication: HYPERCHOLESTEROLAEMIA
     Dosage: 145 MG, QD
  4. ZETIA [Concomitant]
     Indication: HYPERCHOLESTEROLAEMIA
     Dosage: 10 MG, QD
  5. ASPIRIN [Concomitant]
     Indication: CARDIAC DISORDER
  6. COZAAR [Concomitant]
  7. MACRODANTIN [Concomitant]
     Indication: URINARY TRACT INFECTION
  8. LOVAZA [Concomitant]
     Indication: SUPPLEMENTATION THERAPY
     Dosage: 1000 MG, BID
  9. MULTI-VITAMIN [Concomitant]
  10. OSCAL D [Concomitant]
     Indication: PRODUCT USED FOR UNKNOWN INDICATION
     Dosage: 500 UNK, UNK
  11. METAMUCIL-2 [Concomitant]
  12. BENADRYL [Concomitant]
  13. CLARITIN [Concomitant]

REACTIONS (4)
  - EYE PRURITUS [None]
  - EYE SWELLING [None]
  - EYELID EXFOLIATION [None]
  - OCULAR HYPERAEMIA [None]
